FAERS Safety Report 6748911-6 (Version None)
Quarter: 2010Q2

REPORT INFORMATION
  Report Type: 
  Country: None (occurrence: None)
  Receive Date: 20100601
  Receipt Date: 20100428
  Transmission Date: 20101027
  Serious: Yes (Hospitalization, Other)
  Sender: FDA-Public Use
  Company Number: US-BAYER-200938965NA

PATIENT
  Sex: Female
  Weight: 75 kg

DRUGS (3)
  1. YAZ [Suspect]
     Indication: CONTRACEPTION
     Dosage: 2003, 2004 AND 2007
     Route: 048
  2. YASMIN [Suspect]
     Indication: CONTRACEPTION
     Dosage: 2003, 2004 AND 2007
     Route: 048
  3. ADVIL LIQUI-GELS [Concomitant]
     Dosage: 2004
     Route: 065

REACTIONS (2)
  - GASTROINTESTINAL INJURY [None]
  - PAIN [None]
